FAERS Safety Report 5058625-9 (Version None)
Quarter: 2006Q3

REPORT INFORMATION
  Report Type: 
  Country: None (occurrence: None)
  Receive Date: 20060721
  Receipt Date: 20060622
  Transmission Date: 20061208
  Serious: Yes (Disabling)
  Sender: FDA-Public Use
  Company Number: US-MERCK-0606USA04386

PATIENT
  Age: 54 Year
  Sex: Female
  Weight: 103 kg

DRUGS (2)
  1. ZETIA [Suspect]
     Indication: BLOOD CHOLESTEROL INCREASED
     Route: 048
     Dates: start: 20050201, end: 20050101
  2. ZETIA [Suspect]
     Route: 048
     Dates: start: 20051201, end: 20060201

REACTIONS (3)
  - DYSPNOEA EXERTIONAL [None]
  - MIGRAINE [None]
  - PALPITATIONS [None]
